FAERS Safety Report 22109732 (Version 1)
Quarter: 2023Q1

REPORT INFORMATION
  Report Type: Spontaneous
  Country: US (occurrence: US)
  Receive Date: 20230317
  Receipt Date: 20230317
  Transmission Date: 20230418
  Serious: Yes (Other)
  Sender: FDA-Public Use
  Company Number: US-AMGEN-USASP2023044744

PATIENT

DRUGS (2)
  1. BLINCYTO [Suspect]
     Active Substance: BLINATUMOMAB
     Indication: Acute lymphocytic leukaemia
     Dosage: 14 MICROGRAM, QD
     Route: 065
     Dates: start: 20230309
  2. BLINCYTO [Suspect]
     Active Substance: BLINATUMOMAB
     Indication: Minimal residual disease

REACTIONS (1)
  - Cytokine release syndrome [Unknown]

NARRATIVE: CASE EVENT DATE: 20230301
